FAERS Safety Report 11633988 (Version 1)
Quarter: 2015Q4

REPORT INFORMATION
  Report Type: Spontaneous
  Country: US (occurrence: US)
  Receive Date: 20151015
  Receipt Date: 20151015
  Transmission Date: 20160304
  Serious: No
  Sender: FDA-Public Use
  Company Number: US-INDIVIOR-RB-74305-2014

PATIENT
  Age: 25 Year
  Sex: Female

DRUGS (2)
  1. IMITREX [Concomitant]
     Active Substance: SUMATRIPTAN\SUMATRIPTAN SUCCINATE
     Indication: MIGRAINE
     Dosage: UNK, AS NECESSARY
     Route: 048
  2. SUBOXONE [Suspect]
     Active Substance: BUPRENORPHINE HYDROCHLORIDE\NALOXONE HYDROCHLORIDE
     Indication: MIGRAINE
     Dosage: 4 MG, QD
     Route: 060
     Dates: start: 20141212, end: 20141212

REACTIONS (6)
  - Miosis [Not Recovered/Not Resolved]
  - Off label use [Recovered/Resolved]
  - Vomiting [Not Recovered/Not Resolved]
  - Substance abuse [Recovered/Resolved]
  - Product preparation error [Recovered/Resolved]
  - Pruritus [Not Recovered/Not Resolved]

NARRATIVE: CASE EVENT DATE: 20141212
